FAERS Safety Report 23180620 (Version 1)
Quarter: 2023Q4

REPORT INFORMATION
  Report Type: Spontaneous
  Country: US (occurrence: US)
  Receive Date: 20231114
  Receipt Date: 20231114
  Transmission Date: 20240110
  Serious: No
  Sender: FDA-Public Use
  Company Number: US-BRISTOL-MYERS SQUIBB COMPANY-2023-162861

PATIENT
  Age: 46 Year
  Sex: Female
  Weight: 110 kg

DRUGS (1)
  1. ABRAXANE [Suspect]
     Active Substance: PACLITAXEL
     Indication: Breast cancer
     Dosage: FREQ: ON DAYS 1, 8 AND 15, EVERY 21 DAYS.
     Route: 042

REACTIONS (1)
  - Off label use [Unknown]
